FAERS Safety Report 7056388-9 (Version None)
Quarter: 2010Q4

REPORT INFORMATION
  Report Type: 
  Country: None (occurrence: None)
  Receive Date: 20101021
  Receipt Date: 20101005
  Transmission Date: 20110411
  Serious: Yes (Other)
  Sender: FDA-Public Use
  Company Number: PHHY2010JP68408

PATIENT
  Age: 67 Year
  Sex: Male

DRUGS (2)
  1. STARSIS [Suspect]
     Indication: TYPE 2 DIABETES MELLITUS
     Dosage: 270 MG
     Route: 048
     Dates: start: 20090822
  2. METFORMIN HYDROCHLORIDE [Concomitant]
     Dosage: 750 MG

REACTIONS (1)
  - BILE DUCT CANCER [None]
